FAERS Safety Report 19792989 (Version 1)
Quarter: 2021Q3

REPORT INFORMATION
  Report Type: Report from Study
  Country: NL (occurrence: NL)
  Receive Date: 20210906
  Receipt Date: 20210906
  Transmission Date: 20211014
  Serious: Yes (Other)
  Sender: FDA-Public Use
  Company Number: NL-SA-2021SA292639

PATIENT
  Age: 62 Year

DRUGS (1)
  1. DUPILUMAB [Suspect]
     Active Substance: DUPILUMAB
     Indication: DERMATITIS ATOPIC
     Dosage: 300 MG, Q4W
     Dates: start: 20171220, end: 20201112

REACTIONS (2)
  - Off label use [Unknown]
  - Lymphoma [Unknown]

NARRATIVE: CASE EVENT DATE: 20171220
